FAERS Safety Report 9442870 (Version 1)
Quarter: 2013Q3

REPORT INFORMATION
  Report Type: Report from Study
  Country: US (occurrence: US)
  Receive Date: 20130806
  Receipt Date: 20130806
  Transmission Date: 20140515
  Serious: Yes (Other)
  Sender: FDA-Public Use
  Company Number: US-ABBOTT-13P-163-1126937-00

PATIENT
  Age: 61 Year
  Sex: Female

DRUGS (13)
  1. HUMIRA [Suspect]
     Indication: CROHN^S DISEASE
     Dates: start: 20130124, end: 20130618
  2. SINGULAIR [Concomitant]
     Indication: ASTHMA
  3. SINGULAIR [Concomitant]
     Indication: HYPERSENSITIVITY
  4. ZYRTEC [Concomitant]
     Indication: ASTHMA
     Dosage: AT NIGHT
  5. ZYRTEC [Concomitant]
     Indication: HYPERSENSITIVITY
  6. ACIPHEX [Concomitant]
     Indication: GASTROOESOPHAGEAL REFLUX DISEASE
  7. LISINOPRIL [Concomitant]
     Indication: HYPERTENSION
  8. MULTIVITAMIN [Concomitant]
     Indication: PRODUCT USED FOR UNKNOWN INDICATION
  9. EXTRA CALCIUM WITH VITAMIN D [Concomitant]
     Indication: PRODUCT USED FOR UNKNOWN INDICATION
  10. LEVOTHYROXINE [Concomitant]
     Indication: HYPOTHYROIDISM
     Dosage: IN THE MORNING
  11. ACTINOL Q [Concomitant]
     Indication: OSTEOPOROSIS
     Dosage: MONTHLY
  12. ASMANEX [Concomitant]
     Indication: ASTHMA
     Dosage: TWISTHALER, ONE PUFF DAILY
  13. MORPHINE [Concomitant]
     Indication: PRODUCT USED FOR UNKNOWN INDICATION

REACTIONS (5)
  - Inflammation [Recovering/Resolving]
  - Abdominal adhesions [Recovering/Resolving]
  - Crohn^s disease [Unknown]
  - Abdominal pain [Unknown]
  - Injection site bruising [Recovering/Resolving]
